FAERS Safety Report 4513968-X (Version None)
Quarter: 2004Q4

REPORT INFORMATION
  Report Type: 
  Country: None (occurrence: None)
  Receive Date: 20041124
  Receipt Date: 20041105
  Transmission Date: 20050328
  Serious: Yes (Disabling)
  Sender: FDA-Public Use
  Company Number: GBS041115882

PATIENT
  Age: 9 Year
  Sex: Female

DRUGS (3)
  1. STRATTERA [Suspect]
     Indication: ATTENTION DEFICIT/HYPERACTIVITY DISORDER
     Dosage: 40 MG
     Dates: start: 20041018
  2. TEGRETOL (CARBAMAZEPINE RIVOPHARM) [Concomitant]
  3. METHYLPHENIDATE [Concomitant]

REACTIONS (1)
  - OBSESSIVE THOUGHTS [None]
